FAERS Safety Report 13204155 (Version 1)
Quarter: 2017Q1

REPORT INFORMATION
  Report Type: Spontaneous
  Country: JP (occurrence: JP)
  Receive Date: 20170209
  Receipt Date: 20170209
  Transmission Date: 20170428
  Serious: Yes (Other)
  Sender: FDA-Public Use
  Company Number: JP-GLAXOSMITHKLINE-JP2017JPN015998

PATIENT
  Age: 78 Year
  Sex: Male

DRUGS (1)
  1. RELENZA [Suspect]
     Active Substance: ZANAMIVIR
     Indication: INFLUENZA
     Dosage: UNK
     Route: 055
     Dates: start: 20170131

REACTIONS (3)
  - Hallucination [Unknown]
  - Fall [Unknown]
  - Loss of control of legs [Unknown]

NARRATIVE: CASE EVENT DATE: 201702
